FAERS Safety Report 17402258 (Version 4)
Quarter: 2020Q2

REPORT INFORMATION
  Report Type: Spontaneous
  Country: US (occurrence: US)
  Receive Date: 20200211
  Receipt Date: 20200402
  Transmission Date: 20200713
  Serious: No
  Sender: FDA-Public Use
  Company Number: US-PFIZER INC-2019531602

PATIENT
  Age: 60 Year
  Sex: Male
  Weight: 63.5 kg

DRUGS (3)
  1. INLYTA [Suspect]
     Active Substance: AXITINIB
     Indication: RENAL CANCER
     Dosage: 5 MG, UNK
  2. INLYTA [Suspect]
     Active Substance: AXITINIB
     Dosage: 3 MG, 2X/DAY(3MG(OF 1MG) TABLET ORAL TWICE A DAY (BID)^ QTY 90)
     Route: 048
  3. INLYTA [Suspect]
     Active Substance: AXITINIB
     Dosage: 1 MG, UNK

REACTIONS (1)
  - Diarrhoea [Unknown]
